FAERS Safety Report 18879877 (Version 1)
Quarter: 2021Q1

REPORT INFORMATION
  Report Type: Spontaneous
  Country: US (occurrence: US)
  Receive Date: 20210211
  Receipt Date: 20210211
  Transmission Date: 20210420
  Serious: No
  Sender: FDA-Public Use
  Company Number: US-BIOGEN-2019BI00686258

PATIENT
  Sex: Female

DRUGS (2)
  1. TECFIDERA [Suspect]
     Active Substance: DIMETHYL FUMARATE
     Route: 048
     Dates: start: 201804
  2. TECFIDERA [Suspect]
     Active Substance: DIMETHYL FUMARATE
     Indication: MULTIPLE SCLEROSIS
     Route: 050
     Dates: start: 20181113

REACTIONS (10)
  - Diarrhoea [Unknown]
  - Gastrointestinal disorder [Unknown]
  - Chromaturia [Unknown]
  - Flushing [Unknown]
  - Abdominal discomfort [Unknown]
  - Nausea [Unknown]
  - Product dose omission issue [Unknown]
  - Hepatic function abnormal [Unknown]
  - Memory impairment [Not Recovered/Not Resolved]
  - Flatulence [Unknown]
